FAERS Safety Report 6331449-8 (Version None)
Quarter: 2009Q3

REPORT INFORMATION
  Report Type: 
  Country: None (occurrence: None)
  Receive Date: 20090827
  Receipt Date: 20090823
  Transmission Date: 20100115
  Serious: Yes (Death, Hospitalization)
  Sender: FDA-Public Use
  Company Number: TW-BAXTER-2009BH012016

PATIENT
  Sex: Male

DRUGS (4)
  1. DIANEAL [Suspect]
     Indication: PERITONEAL DIALYSIS
     Route: 033
     Dates: start: 20050301
  2. DIANEAL [Suspect]
     Route: 033
     Dates: start: 20050301, end: 20090701
  3. EXTRANEAL [Suspect]
     Indication: PERITONEAL DIALYSIS
     Route: 033
     Dates: start: 20090701
  4. EXTRANEAL [Suspect]
     Route: 033
     Dates: start: 20050301, end: 20090701

REACTIONS (3)
  - CARDIAC FAILURE [None]
  - SEPSIS [None]
  - WOUND INFECTION [None]
